FAERS Safety Report 4601867-4 (Version None)
Quarter: 2005Q1

REPORT INFORMATION
  Report Type: 
  Country: None (occurrence: None)
  Receive Date: 20050131
  Receipt Date: 20041202
  Transmission Date: 20050727
  Serious: No
  Sender: FDA-Public Use
  Company Number: 200419256US

PATIENT
  Sex: Female

DRUGS (2)
  1. TELITHROMYCIN (KETEK) TABLETS [Suspect]
     Indication: SINUSITIS
     Dosage: 400 MG QD PO
     Route: 048
     Dates: start: 20041202, end: 20041202
  2. STEROID INJECTION [Concomitant]

REACTIONS (1)
  - VISION BLURRED [None]
